FAERS Safety Report 9747323 (Version 2)
Quarter: 2015Q4

REPORT INFORMATION
  Report Type: Report from Study
  Country: US (occurrence: US)
  Receive Date: 20131212
  Receipt Date: 20151026
  Transmission Date: 20160305
  Serious: Yes (Death)
  Sender: FDA-Public Use
  Company Number: US-ROCHE-1318621

PATIENT
  Sex: Female

DRUGS (4)
  1. FOLINIC ACID [Concomitant]
     Active Substance: LEUCOVORIN
  2. OXALIPLATIN. [Concomitant]
     Active Substance: OXALIPLATIN
  3. FLUOROURACIL. [Concomitant]
     Active Substance: FLUOROURACIL
  4. AVASTIN [Suspect]
     Active Substance: BEVACIZUMAB
     Indication: COLON CANCER
     Dosage: 8/JUL/2011, 20/JUL/2011, 3/AUG/2011, 31/AUG/2011, 14/SEP/2011, 18/APR/2012, 2/MAY/2012, 11/JUN/2012
     Route: 065

REACTIONS (2)
  - Proteinuria [Fatal]
  - Disease progression [Unknown]
